FAERS Safety Report 6156754-X (Version None)
Quarter: 2009Q2

REPORT INFORMATION
  Report Type: 
  Country: None (occurrence: None)
  Receive Date: 20090416
  Receipt Date: 20090406
  Transmission Date: 20091009
  Serious: Yes (Hospitalization)
  Sender: FDA-Public Use
  Company Number: US-BAYER-200911053BCC

PATIENT
  Sex: Male

DRUGS (11)
  1. ASPIRIN [Suspect]
     Indication: DRUG USE FOR UNKNOWN INDICATION
  2. PLAVIX [Suspect]
     Indication: DRUG USE FOR UNKNOWN INDICATION
  3. IPILIMUMAB OR PLACEBO [Suspect]
     Indication: LUNG NEOPLASM MALIGNANT
     Dosage: FREQUENCY OF COURSE OF THERAPY NOS
     Route: 042
     Dates: start: 20081201, end: 20090303
  4. TAXOL [Suspect]
     Indication: LUNG NEOPLASM MALIGNANT
     Dosage: FREQUENCY OF COURSE OF THERAPY NOS
     Route: 042
     Dates: start: 20081201, end: 20090303
  5. CARBOPLATIN [Suspect]
     Indication: LUNG NEOPLASM MALIGNANT
     Dosage: FREQUENCY OF COURSE OF THERAPY NOS
     Route: 042
     Dates: start: 20081201, end: 20090303
  6. METOPROLOL TARTRATE [Concomitant]
  7. THEO-DUR [Concomitant]
  8. COMBIVENT [Concomitant]
  9. ALBUTEROL [Concomitant]
  10. ATROVENT [Concomitant]
  11. ISORDIL [Concomitant]

REACTIONS (8)
  - ABDOMINAL PAIN [None]
  - GASTRIC ULCER [None]
  - GASTRITIS [None]
  - HAEMATEMESIS [None]
  - HAEMATOCRIT DECREASED [None]
  - HAEMOGLOBIN DECREASED [None]
  - HIATUS HERNIA [None]
  - PLATELET COUNT DECREASED [None]
